FAERS Safety Report 4735824-4 (Version None)
Quarter: 2005Q3

REPORT INFORMATION
  Report Type: 
  Country: None (occurrence: None)
  Receive Date: 20050803
  Receipt Date: 20050803
  Transmission Date: 20060218
  Serious: Yes (Other)
  Sender: FDA-Public Use
  Company Number: None

PATIENT
  Sex: Male
  Weight: 14.5151 kg

DRUGS (1)
  1. TOPAMAX [Suspect]
     Indication: EPILEPSY
     Dosage: 200MG  2 X DAILY
     Dates: start: 20030601, end: 20041231

REACTIONS (2)
  - NONSPECIFIC REACTION [None]
  - OVERDOSE [None]
